FAERS Safety Report 4849886-7 (Version None)
Quarter: 2005Q4

REPORT INFORMATION
  Report Type: 
  Country: None (occurrence: None)
  Receive Date: 20051114
  Receipt Date: 20050523
  Transmission Date: 20060501
  Serious: Yes (Other)
  Sender: FDA-Public Use
  Company Number: 18571

PATIENT
  Age: 60 Year
  Sex: Female

DRUGS (3)
  1. PAMIDRONATE DISODIUM [Suspect]
     Indication: BONE DENSITY DECREASED
     Dosage: 30 MG IV X1 MONTHLY
     Route: 042
  2. DURAGESIC-100 [Concomitant]
  3. MS CONTIN [Concomitant]

REACTIONS (3)
  - HYPERHIDROSIS [None]
  - NAUSEA [None]
  - VOMITING [None]
